FAERS Safety Report 18595129 (Version 3)
Quarter: 2021Q1

REPORT INFORMATION
  Report Type: Spontaneous
  Country: US (occurrence: US)
  Receive Date: 20201209
  Receipt Date: 20210113
  Transmission Date: 20210419
  Serious: Yes (Hospitalization)
  Sender: FDA-Public Use
  Company Number: US-CATALYST PHARMACEUTICALS, INC-2020CAT00593

PATIENT
  Age: 65 Year
  Sex: Female
  Weight: 55.33 kg

DRUGS (17)
  1. PREDNISONE. [Suspect]
     Active Substance: PREDNISONE
  2. LORATADINE. [Concomitant]
     Active Substance: LORATADINE
  3. VITAMIN D [Concomitant]
     Active Substance: VITAMIN D NOS
  4. MONTELUKAST [Concomitant]
     Active Substance: MONTELUKAST SODIUM
  5. FIRDAPSE [Suspect]
     Active Substance: AMIFAMPRIDINE PHOSPHATE
     Indication: MYASTHENIC SYNDROME
     Dosage: 20 MG, 4X/DAY
     Route: 048
     Dates: start: 20200728, end: 202011
  6. FIRDAPSE [Suspect]
     Active Substance: AMIFAMPRIDINE PHOSPHATE
     Dosage: 10 MG, 3X/DAY
     Route: 048
     Dates: start: 20201116
  7. FISH OIL (OMEGA 3) [Concomitant]
     Dosage: 1 CAPSULE, 1X/DAY
     Route: 048
  8. MESTINON [Concomitant]
     Active Substance: PYRIDOSTIGMINE BROMIDE
     Dosage: 60 MG, 3X/DAY
     Route: 048
  9. GAMMAGARD [Concomitant]
     Active Substance: HUMAN IMMUNOGLOBULIN G
     Dosage: UNK, 1X/MONTH
  10. APIXABAN [Suspect]
     Active Substance: APIXABAN
     Dosage: 2.5 MG, 2X/DAY
     Route: 048
  11. FAMOTIDINE. [Concomitant]
     Active Substance: FAMOTIDINE
     Dosage: 20 MG, 2X/DAY
     Route: 048
  12. VITAMIN B12 [Concomitant]
     Active Substance: CYANOCOBALAMIN
     Dosage: 1 TABLET, 1X/DAY
     Route: 048
  13. VITAMIN C [Concomitant]
     Active Substance: ASCORBIC ACID
  14. IBUPROFEN. [Concomitant]
     Active Substance: IBUPROFEN
  15. MYCOPHENOLATE MOFETIL. [Concomitant]
     Active Substance: MYCOPHENOLATE MOFETIL
     Dosage: 1000 MG, 2X/DAY
     Route: 048
  16. ZINC. [Concomitant]
     Active Substance: ZINC
     Dosage: 220 MG, 1X/DAY
     Route: 048
  17. MELATONIN [Concomitant]
     Active Substance: MELATONIN

REACTIONS (10)
  - Hypomagnesaemia [Unknown]
  - Anaemia [Unknown]
  - Fluid overload [Recovering/Resolving]
  - Hyponatraemia [Recovering/Resolving]
  - Leukocytosis [Unknown]
  - Arteriosclerosis coronary artery [Not Recovered/Not Resolved]
  - COVID-19 [Recovering/Resolving]
  - Product dose omission issue [Recovered/Resolved]
  - Arteriosclerosis [Not Recovered/Not Resolved]
  - Thrombocytosis [Unknown]

NARRATIVE: CASE EVENT DATE: 202011
